FAERS Safety Report 15033573 (Version 1)
Quarter: 2018Q2

REPORT INFORMATION
  Report Type: Spontaneous
  Country: US (occurrence: US)
  Receive Date: 20180619
  Receipt Date: 20180619
  Transmission Date: 20180711
  Serious: No
  Sender: FDA-Public Use
  Company Number: US-AMGEN-USASP2011005195

PATIENT

DRUGS (2)
  1. MELPHALAN. [Concomitant]
     Active Substance: MELPHALAN
  2. NEUPOGEN [Suspect]
     Active Substance: FILGRASTIM
     Indication: AUTOLOGOUS BONE MARROW TRANSPLANTATION THERAPY
     Dosage: UNK

REACTIONS (1)
  - Mucosal inflammation [Unknown]
